FAERS Safety Report 7278780-X (Version None)
Quarter: 2011Q1

REPORT INFORMATION
  Report Type: 
  Country: None (occurrence: None)
  Receive Date: 20110207
  Receipt Date: 20110128
  Transmission Date: 20110831
  Serious: Yes (Hospitalization)
  Sender: FDA-Public Use
  Company Number: NL-MEDIMMUNE-MEDI-0012403

PATIENT
  Sex: Female
  Weight: 3.2 kg

DRUGS (2)
  1. SYNAGIS [Suspect]
     Route: 030
     Dates: start: 20101229, end: 20101229
  2. SYNAGIS [Suspect]
     Route: 030
     Dates: start: 20110127, end: 20110127

REACTIONS (3)
  - DYSPNOEA [None]
  - USE OF ACCESSORY RESPIRATORY MUSCLES [None]
  - NASOPHARYNGITIS [None]
